FAERS Safety Report 15317426 (Version 3)
Quarter: 2019Q1

REPORT INFORMATION
  Report Type: Spontaneous
  Country: US (occurrence: US)
  Receive Date: 20180824
  Receipt Date: 20190319
  Transmission Date: 20190417
  Serious: Yes (Hospitalization, Other)
  Sender: FDA-Public Use
  Company Number: US-ASTRAZENECA-2018SF04791

PATIENT
  Age: 18776 Day
  Sex: Female
  Weight: 92.5 kg

DRUGS (59)
  1. PREVACID [Suspect]
     Active Substance: LANSOPRAZOLE
     Indication: GASTROOESOPHAGEAL REFLUX DISEASE
     Route: 065
     Dates: start: 2012, end: 2016
  2. PEPCID [Concomitant]
     Active Substance: FAMOTIDINE
  3. PEPTO-BISMOL [Concomitant]
     Active Substance: BISMUTH SUBSALICYLATE
  4. LISINOPRIL. [Concomitant]
     Active Substance: LISINOPRIL
     Route: 048
     Dates: start: 20150323
  5. PANTOPRAZOLE [Concomitant]
     Active Substance: PANTOPRAZOLE
     Route: 048
     Dates: start: 20140918
  6. PREDNISONE. [Concomitant]
     Active Substance: PREDNISONE
     Route: 048
     Dates: start: 20160316
  7. FLUTICASONE. [Concomitant]
     Active Substance: FLUTICASONE
     Route: 065
     Dates: start: 20160510
  8. DICLOFENAC SODIUM. [Concomitant]
     Active Substance: DICLOFENAC SODIUM
     Route: 048
     Dates: start: 20091117
  9. PIROXICAM. [Concomitant]
     Active Substance: PIROXICAM
     Route: 048
     Dates: start: 20090217
  10. SIMVASTATIN. [Concomitant]
     Active Substance: SIMVASTATIN
     Route: 048
     Dates: start: 20101104
  11. NEXIUM [Suspect]
     Active Substance: ESOMEPRAZOLE MAGNESIUM
     Indication: GASTROOESOPHAGEAL REFLUX DISEASE
     Route: 048
     Dates: start: 2003, end: 2011
  12. AXID [Concomitant]
     Active Substance: NIZATIDINE
  13. METHADONE [Concomitant]
     Active Substance: METHADONE HYDROCHLORIDE
     Route: 048
     Dates: start: 20140913
  14. PRILOSEC [Suspect]
     Active Substance: OMEPRAZOLE MAGNESIUM
     Dosage: GENERIC
     Route: 065
     Dates: start: 2011, end: 2012
  15. DEXILANT [Suspect]
     Active Substance: DEXLANSOPRAZOLE
     Indication: GASTROOESOPHAGEAL REFLUX DISEASE
     Route: 048
     Dates: start: 20180731
  16. ALKA-SELTZER [Concomitant]
     Active Substance: ANHYDROUS CITRIC ACID\ASPIRIN\SODIUM BICARBONATE
  17. GABAPENTIN. [Concomitant]
     Active Substance: GABAPENTIN
     Route: 048
     Dates: start: 20140913, end: 20150325
  18. OXYCODONE-ACETAMINOPHEN [Concomitant]
     Active Substance: ACETAMINOPHEN\OXYCODONE HYDROCHLORIDE
     Dosage: 10 MG-325 MG
     Route: 048
     Dates: start: 20140913, end: 20150325
  19. OXYCODONE-ACETAMINOPHEN [Concomitant]
     Active Substance: ACETAMINOPHEN\OXYCODONE HYDROCHLORIDE
     Route: 048
     Dates: start: 20160215
  20. ALPRAZOLAM. [Concomitant]
     Active Substance: ALPRAZOLAM
     Route: 048
     Dates: start: 20140913
  21. MONTELUKAST [Concomitant]
     Active Substance: MONTELUKAST SODIUM
     Route: 048
     Dates: start: 20160311
  22. DEXLANSOPRAZOLE [Concomitant]
     Active Substance: DEXLANSOPRAZOLE
     Route: 048
     Dates: start: 20150323
  23. VERAPAMIL [Concomitant]
     Active Substance: VERAPAMIL HYDROCHLORIDE
     Route: 048
     Dates: start: 20160510
  24. PHENERGAN [Concomitant]
     Active Substance: PROMETHAZINE HYDROCHLORIDE
     Route: 048
     Dates: start: 20101104
  25. MAGNESIUM OXIDE. [Concomitant]
     Active Substance: MAGNESIUM OXIDE
     Route: 048
     Dates: start: 20180731
  26. DILANTIN [Concomitant]
     Active Substance: PHENYTOIN
     Route: 048
     Dates: start: 20150906
  27. DEXILANT [Suspect]
     Active Substance: DEXLANSOPRAZOLE
     Indication: GASTROOESOPHAGEAL REFLUX DISEASE
     Route: 065
     Dates: start: 2002
  28. TAPENTADOL [Concomitant]
     Active Substance: TAPENTADOL
     Route: 048
     Dates: start: 20140913
  29. ESTRADIOL. [Concomitant]
     Active Substance: ESTRADIOL
     Route: 048
     Dates: start: 20150323, end: 20150325
  30. FUROSEMIDE. [Concomitant]
     Active Substance: FUROSEMIDE
     Route: 048
     Dates: start: 20161026
  31. HYDROCHLOROTHIAZIDE. [Concomitant]
     Active Substance: HYDROCHLOROTHIAZIDE
     Route: 048
     Dates: start: 20090217
  32. METFORMIN [Concomitant]
     Active Substance: METFORMIN HYDROCHLORIDE
     Route: 048
     Dates: start: 20101104
  33. GABAPENTIN. [Concomitant]
     Active Substance: GABAPENTIN
     Route: 048
     Dates: start: 20130711
  34. NITROGLYCERIN. [Concomitant]
     Active Substance: NITROGLYCERIN
     Route: 065
     Dates: start: 20180731
  35. NEXIUM [Suspect]
     Active Substance: ESOMEPRAZOLE MAGNESIUM
     Indication: GASTROOESOPHAGEAL REFLUX DISEASE
     Route: 048
     Dates: start: 2002
  36. NEXIUM 24HR [Suspect]
     Active Substance: ESOMEPRAZOLE MAGNESIUM
     Indication: GASTROOESOPHAGEAL REFLUX DISEASE
     Route: 048
  37. DEXILANT [Suspect]
     Active Substance: DEXLANSOPRAZOLE
     Indication: GASTROOESOPHAGEAL REFLUX DISEASE
     Route: 048
     Dates: start: 20121218
  38. ZANTAC [Concomitant]
     Active Substance: RANITIDINE HYDROCHLORIDE
     Route: 065
  39. NOVOLIN 70/30 [Concomitant]
     Active Substance: INSULIN HUMAN
     Route: 065
     Dates: start: 20150323
  40. CLORAZEPATE DIPOTASSIUM. [Concomitant]
     Active Substance: CLORAZEPATE DIPOTASSIUM
     Route: 048
     Dates: start: 20180731
  41. DEXILANT [Suspect]
     Active Substance: DEXLANSOPRAZOLE
     Indication: GASTROOESOPHAGEAL REFLUX DISEASE
     Dosage: 30/60MG
     Route: 065
     Dates: start: 2012, end: 2016
  42. SERTRALINE [Concomitant]
     Active Substance: SERTRALINE HYDROCHLORIDE
     Route: 048
     Dates: start: 20150323, end: 20150325
  43. PROMETHAZINE [Concomitant]
     Active Substance: PROMETHAZINE\PROMETHAZINE HYDROCHLORIDE
     Route: 048
     Dates: start: 20130711
  44. TRAMADOL HYDROCHLORIDE. [Concomitant]
     Active Substance: TRAMADOL HYDROCHLORIDE
     Route: 048
     Dates: start: 20150526
  45. FEXOFENADINE [Concomitant]
     Active Substance: FEXOFENADINE\FEXOFENADINE HYDROCHLORIDE
     Dosage: AS NEDDED
     Route: 048
     Dates: start: 20180731
  46. DOXYCYCLIN [Concomitant]
     Active Substance: DOXYCYCLINE
     Route: 048
     Dates: start: 20150906
  47. NEXIUM [Suspect]
     Active Substance: ESOMEPRAZOLE MAGNESIUM
     Indication: GASTROOESOPHAGEAL REFLUX DISEASE
     Route: 048
     Dates: start: 20080515
  48. MONTELUKAST [Concomitant]
     Active Substance: MONTELUKAST SODIUM
     Route: 048
     Dates: start: 20150323, end: 20150325
  49. IPRATROPIUM-ALBUTEROL [Concomitant]
     Active Substance: ALBUTEROL\IPRATROPIUM
     Dosage: 0.5 MG-2.5 MG/3 MLINHALATION SOLUTION
     Route: 065
     Dates: start: 20150918
  50. ADIPEX-P [Concomitant]
     Active Substance: PHENTERMINE HYDROCHLORIDE
     Route: 048
     Dates: start: 20090410
  51. METRONIDAZOLE. [Concomitant]
     Active Substance: METRONIDAZOLE
     Route: 048
     Dates: start: 20081230
  52. NEXIUM [Suspect]
     Active Substance: ESOMEPRAZOLE MAGNESIUM
     Indication: GASTROOESOPHAGEAL REFLUX DISEASE
     Route: 048
  53. DEXILANT [Suspect]
     Active Substance: DEXLANSOPRAZOLE
     Indication: GASTROOESOPHAGEAL REFLUX DISEASE
     Route: 065
     Dates: start: 2012
  54. ALPRAZOLAM. [Concomitant]
     Active Substance: ALPRAZOLAM
     Route: 048
     Dates: start: 20160223
  55. NEBIVOLOL. [Concomitant]
     Active Substance: NEBIVOLOL
     Route: 048
     Dates: start: 20150323
  56. SERTRALINE [Concomitant]
     Active Substance: SERTRALINE HYDROCHLORIDE
     Route: 048
     Dates: start: 20160409
  57. ATORVASTATIN [Concomitant]
     Active Substance: ATORVASTATIN
     Route: 048
     Dates: start: 20150323
  58. BACTRIM [Concomitant]
     Active Substance: SULFAMETHOXAZOLE\TRIMETHOPRIM
     Dosage: 800 MG-160 MG 2 TIMES A DAY
     Route: 048
     Dates: start: 20091020
  59. AMLODIPINE [Concomitant]
     Active Substance: AMLODIPINE BESYLATE
     Route: 048
     Dates: start: 20130611

REACTIONS (3)
  - Acute kidney injury [Recovered/Resolved]
  - Chronic kidney disease [Unknown]
  - Renal failure [Unknown]

NARRATIVE: CASE EVENT DATE: 20130711
